FAERS Safety Report 7328796-X (Version None)
Quarter: 2011Q1

REPORT INFORMATION
  Report Type: 
  Country: None (occurrence: None)
  Receive Date: 20110303
  Receipt Date: 20110303
  Transmission Date: 20110831
  Serious: Yes (Hospitalization)
  Sender: FDA-Public Use
  Company Number: PHHO2008CZ03725

PATIENT
  Sex: Male
  Weight: 61 kg

DRUGS (5)
  1. PLACEBO [Suspect]
     Indication: CARCINOID TUMOUR
     Dosage: PLACEBO
     Route: 048
     Dates: start: 20080222
  2. GODASAL [Concomitant]
  3. SORTIS [Concomitant]
  4. OMEPRAZOLE [Concomitant]
     Indication: GASTROINTESTINAL HAEMORRHAGE
     Dosage: UNK
     Route: 048
     Dates: start: 20061001
  5. SANDOSTATIN LAR [Suspect]
     Indication: CARCINOID TUMOUR
     Route: 048
     Dates: start: 20080222

REACTIONS (6)
  - ANAEMIA [None]
  - IRON DEFICIENCY ANAEMIA [None]
  - MELAENA [None]
  - DYSPNOEA [None]
  - HYPERCHLORHYDRIA [None]
  - MUCOSAL HAEMORRHAGE [None]
